FAERS Safety Report 22647036 (Version 1)
Quarter: 2023Q2

REPORT INFORMATION
  Report Type: Spontaneous
  Country: US (occurrence: US)
  Receive Date: 20230627
  Receipt Date: 20230627
  Transmission Date: 20230722
  Serious: No
  Sender: FDA-Public Use
  Company Number: US-PERRIGO-23US005926

PATIENT
  Age: 64 Year
  Sex: Male
  Weight: 92.063 kg

DRUGS (1)
  1. NASONEX [Suspect]
     Active Substance: MOMETASONE FUROATE
     Indication: Hypersensitivity
     Dosage: 50 MCG IN EACH NOSTRIL, QD
     Route: 045
     Dates: start: 20230508, end: 20230515

REACTIONS (3)
  - Drug ineffective [Unknown]
  - Underdose [Unknown]
  - Incorrect product administration duration [Unknown]

NARRATIVE: CASE EVENT DATE: 20230508
